FAERS Safety Report 7660140-0 (Version None)
Quarter: 2011Q3

REPORT INFORMATION
  Report Type: 
  Country: None (occurrence: None)
  Receive Date: 20110805
  Receipt Date: 20110726
  Transmission Date: 20111222
  Serious: Yes (Hospitalization)
  Sender: FDA-Public Use
  Company Number: PHHY2011MX68447

PATIENT
  Sex: Male

DRUGS (4)
  1. GLYBURIDE [Concomitant]
  2. METFORMIN HCL [Concomitant]
  3. UNSPECIFIED DRUG FOR INSOMNIA [Concomitant]
  4. EXELON [Suspect]
     Indication: DEMENTIA ALZHEIMER'S TYPE
     Dosage: 1 PATCH  (5CM2/ 4.6 MG) DAILY
     Route: 062
     Dates: start: 20110615, end: 20110722

REACTIONS (4)
  - HYPOTHERMIA [None]
  - ANGER [None]
  - DIARRHOEA [None]
  - DEHYDRATION [None]
